FAERS Safety Report 11309305 (Version 1)
Quarter: 2015Q3

REPORT INFORMATION
  Report Type: Report from Study
  Country: US (occurrence: US)
  Receive Date: 20150724
  Receipt Date: 20150724
  Transmission Date: 20151125
  Serious: Yes (Death, Hospitalization)
  Sender: FDA-Public Use
  Company Number: US-ASTELLAS-2015US019096

PATIENT
  Age: 83 Year
  Sex: Male

DRUGS (1)
  1. ERLOTINIB [Suspect]
     Active Substance: ERLOTINIB
     Indication: PANCREATIC CARCINOMA
     Route: 048
     Dates: end: 20090913

REACTIONS (2)
  - Diarrhoea [Recovered/Resolved]
  - Death [Fatal]

NARRATIVE: CASE EVENT DATE: 20090910
